FAERS Safety Report 14338246 (Version 7)
Quarter: 2018Q4

REPORT INFORMATION
  Report Type: Report from Study
  Country: JP (occurrence: JP)
  Receive Date: 20171229
  Receipt Date: 20181120
  Transmission Date: 20190204
  Serious: Yes (Hospitalization)
  Sender: FDA-Public Use
  Company Number: JP-PFIZER INC-2017538759

PATIENT
  Age: 75 Year
  Sex: Male
  Weight: 64 kg

DRUGS (26)
  1. ISOSORBIDE. [Concomitant]
     Active Substance: ISOSORBIDE
     Route: 048
  2. BISOPROLOL FUMARATE. [Concomitant]
     Active Substance: BISOPROLOL FUMARATE
     Route: 048
  3. GASSAAL [DIMETICONE] [Concomitant]
     Route: 048
  4. XELJANZ [Suspect]
     Active Substance: TOFACITINIB CITRATE
     Indication: RHEUMATOID ARTHRITIS
     Dosage: 5 MG, 1X/DAY
     Route: 048
     Dates: start: 20170310, end: 20170406
  5. FOLIAMIN [Concomitant]
     Active Substance: FOLIC ACID
     Route: 048
  6. RHEUMATREX [Suspect]
     Active Substance: METHOTREXATE SODIUM
     Dosage: 10 MG, WEEKLY
     Route: 048
     Dates: start: 20170217, end: 20170406
  7. RHEUMATREX [Suspect]
     Active Substance: METHOTREXATE SODIUM
     Dosage: 8 MG, WEEKLY
     Route: 048
     Dates: start: 20170407, end: 20170810
  8. MOSAPRIDE CITRATE [Concomitant]
     Active Substance: MOSAPRIDE CITRATE
     Route: 048
  9. RHEUMATREX [Suspect]
     Active Substance: METHOTREXATE SODIUM
     Dosage: 8 MG, WEEKLY
     Route: 048
     Dates: start: 20170120, end: 20170216
  10. ONGLYZA [Concomitant]
     Active Substance: SAXAGLIPTIN HYDROCHLORIDE
     Route: 048
  11. GLUBES [Concomitant]
     Active Substance: MITIGLINIDE CALCIUM HYDRATE\VOGLIBOSE
     Route: 048
  12. METGLUCO [Concomitant]
     Active Substance: METFORMIN HYDROCHLORIDE
     Route: 048
  13. WARFARIN [Concomitant]
     Active Substance: WARFARIN
     Route: 048
  14. XELJANZ [Suspect]
     Active Substance: TOFACITINIB CITRATE
     Dosage: 5 MG, 1X/DAY
     Route: 048
     Dates: start: 20171129
  15. BAYASPIRIN [Concomitant]
     Active Substance: ASPIRIN
     Route: 048
  16. CELECOX [Concomitant]
     Active Substance: CELECOXIB
     Route: 048
  17. BEZAFIBRATE [Concomitant]
     Active Substance: BEZAFIBRATE
     Route: 048
  18. XELJANZ [Suspect]
     Active Substance: TOFACITINIB CITRATE
     Dosage: 5 MG, 2X/DAY
     Route: 048
     Dates: start: 20170407, end: 20171128
  19. CANDESARTAN. [Concomitant]
     Active Substance: CANDESARTAN
     Route: 048
  20. BROTIZOLAM [Concomitant]
     Active Substance: BROTIZOLAM
     Route: 048
  21. DORAL [Concomitant]
     Active Substance: QUAZEPAM
     Route: 048
  22. RHEUMATREX [Suspect]
     Active Substance: METHOTREXATE SODIUM
     Dosage: 6 MG, WEEKLY
     Route: 048
     Dates: start: 20170811
  23. VESTURIT L [Concomitant]
     Route: 048
  24. BENIDIPINE [Concomitant]
     Active Substance: BENIDIPINE
     Route: 048
  25. LANSOPRAZOLE. [Concomitant]
     Active Substance: LANSOPRAZOLE
     Route: 048
  26. SELBEX [Concomitant]
     Active Substance: TEPRENONE
     Route: 048

REACTIONS (1)
  - Frontotemporal dementia [Not Recovered/Not Resolved]

NARRATIVE: CASE EVENT DATE: 20171218
